FAERS Safety Report 8820191 (Version 2)
Quarter: 2012Q4

REPORT INFORMATION
  Report Type: 
  Country: US (occurrence: US)
  Receive Date: 20121002
  Receipt Date: 20121022
  Transmission Date: 20130627
  Serious: Yes (Hospitalization)
  Sender: FDA-Public Use
  Company Number: US-BIOGENIDEC-2012BI040670

PATIENT
  Age: 67 Year
  Sex: Female

DRUGS (13)
  1. TYSABRI [Suspect]
     Indication: MULTIPLE SCLEROSIS
     Route: 042
     Dates: start: 20071016
  2. MOBIC [Concomitant]
     Route: 048
  3. CYMBALTA [Concomitant]
     Route: 048
  4. LEXAPRO [Concomitant]
     Route: 048
  5. ALPRAZOLAM [Concomitant]
     Route: 048
  6. SINGULAIR [Concomitant]
     Route: 048
  7. DURAGESIC [Concomitant]
     Indication: PAIN
  8. ENDOCET [Concomitant]
     Route: 048
  9. SALAGEN [Concomitant]
     Dosage: Dose unit:1 UNKNOWN
     Route: 048
  10. LYRICA [Concomitant]
     Route: 048
  11. SEROQUEL [Concomitant]
     Route: 048
  12. PRISTIQ [Concomitant]
     Route: 048
  13. OXYTROL [Concomitant]

REACTIONS (7)
  - Dehydration [Recovered/Resolved]
  - Renal failure acute [Recovered/Resolved]
  - Multiple sclerosis [Recovered/Resolved]
  - Amnesia [Not Recovered/Not Resolved]
  - Inadequate diet [Recovered/Resolved]
  - Sleep disorder [Recovered/Resolved]
  - Malaise [Recovered/Resolved]
